FAERS Safety Report 5400837-6 (Version None)
Quarter: 2007Q3

REPORT INFORMATION
  Report Type: 
  Country: None (occurrence: None)
  Receive Date: 20070730
  Receipt Date: 20070713
  Transmission Date: 20080115
  Serious: Yes (Other)
  Sender: FDA-Public Use
  Company Number: GB-PFIZER INC-2007061829

PATIENT
  Sex: Male

DRUGS (1)
  1. NICOTINE NASAL SPRAY [Suspect]
     Indication: SMOKING CESSATION THERAPY
     Route: 045

REACTIONS (1)
  - COLITIS ULCERATIVE [None]
